FAERS Safety Report 22641516 (Version 1)
Quarter: 2023Q2

REPORT INFORMATION
  Report Type: Spontaneous
  Country: US (occurrence: US)
  Receive Date: 20230626
  Receipt Date: 20230626
  Transmission Date: 20230721
  Serious: Yes (Death, Hospitalization, Other)
  Sender: FDA-Public Use
  Company Number: US-AMGEN-USASP2023107713

PATIENT

DRUGS (10)
  1. EVOLOCUMAB [Suspect]
     Active Substance: EVOLOCUMAB
     Indication: Arteriosclerosis
     Dosage: UNK
     Route: 065
  2. EVOLOCUMAB [Suspect]
     Active Substance: EVOLOCUMAB
     Indication: Type IIa hyperlipidaemia
  3. EZETIMIBE [Concomitant]
     Active Substance: EZETIMIBE
     Dosage: UNK
  4. SPIRONOLACTONE [Concomitant]
     Active Substance: SPIRONOLACTONE
     Dosage: UNK
  5. GEMFIBROZIL [Concomitant]
     Active Substance: GEMFIBROZIL
     Dosage: UNK
  6. CHOLESTYRAMINE [Concomitant]
     Active Substance: CHOLESTYRAMINE
     Dosage: UNK
  7. COLESTIPOL [Concomitant]
     Active Substance: COLESTIPOL
     Dosage: UNK
  8. FENOFIBRATE [Concomitant]
     Active Substance: FENOFIBRATE
     Dosage: UNK
  9. CLOFIBRATE [Concomitant]
     Active Substance: CLOFIBRATE
     Dosage: UNK
  10. NIACIN [Concomitant]
     Active Substance: NIACIN
     Dosage: UNK

REACTIONS (7)
  - Death [Fatal]
  - Cardiovascular disorder [Unknown]
  - Ischaemic stroke [Unknown]
  - Unevaluable event [Unknown]
  - Acute myocardial infarction [Unknown]
  - Adverse drug reaction [Unknown]
  - Therapy partial responder [Unknown]
